FAERS Safety Report 25403828 (Version 3)
Quarter: 2025Q3

REPORT INFORMATION
  Report Type: Report from Study
  Country: US (occurrence: US)
  Receive Date: 20250606
  Receipt Date: 20250820
  Transmission Date: 20251021
  Serious: Yes (Other)
  Sender: ABBVIE
  Company Number: US-ABBVIE-6295585

PATIENT
  Age: 67 Year
  Sex: Female

DRUGS (1)
  1. HUMIRA [Suspect]
     Active Substance: ADALIMUMAB
     Indication: Rheumatoid arthritis
     Route: 058
     Dates: start: 20220315, end: 2025

REACTIONS (4)
  - Intervertebral disc degeneration [Recovering/Resolving]
  - Implant site inflammation [Recovering/Resolving]
  - Implant site swelling [Not Recovered/Not Resolved]
  - Implant site erythema [Unknown]

NARRATIVE: CASE EVENT DATE: 20250101
